FAERS Safety Report 7228133-5 (Version None)
Quarter: 2011Q1

REPORT INFORMATION
  Report Type: 
  Country: None (occurrence: None)
  Receive Date: 20110114
  Receipt Date: 20101229
  Transmission Date: 20110831
  Serious: No
  Sender: FDA-Public Use
  Company Number: US-B.I. PHARMACEUTICALS,INC./RIDGEFIELD-2010-BP-12293BP

PATIENT
  Sex: Female

DRUGS (5)
  1. SPIRIVA [Suspect]
     Indication: ASTHMA
     Dosage: 18 MCG
     Route: 055
     Dates: start: 20040101
  2. SYMBICORT [Concomitant]
     Dosage: 2 X 2 DAILY
  3. SPIRIVA [Suspect]
     Indication: HYPERSENSITIVITY
  4. LEVOTHYROXINE [Concomitant]
     Indication: HYPOTHYROIDISM
     Dosage: 100 MCG
     Route: 048
  5. LISINOPRIL [Concomitant]
     Indication: PROPHYLAXIS
     Dosage: 10 MG
     Route: 048

REACTIONS (1)
  - DRUG INEFFECTIVE [None]
